FAERS Safety Report 7234750-9 (Version None)
Quarter: 2011Q1

REPORT INFORMATION
  Report Type: 
  Country: None (occurrence: None)
  Receive Date: 20110120
  Receipt Date: 20090921
  Transmission Date: 20110831
  Serious: No
  Sender: FDA-Public Use
  Company Number: 2009BI030368

PATIENT
  Sex: Male

DRUGS (2)
  1. TYSABRI [Suspect]
     Route: 042
     Dates: start: 20090801
  2. TYSABRI [Suspect]
     Indication: MULTIPLE SCLEROSIS
     Route: 042
     Dates: start: 20071002, end: 20090601

REACTIONS (12)
  - TREMOR [None]
  - FALL [None]
  - PAIN IN EXTREMITY [None]
  - HYPERSOMNIA [None]
  - MUSCLE SPASMS [None]
  - LOSS OF CONSCIOUSNESS [None]
  - BIPOLAR I DISORDER [None]
  - SUDDEN ONSET OF SLEEP [None]
  - CONFUSIONAL STATE [None]
  - HAND DEFORMITY [None]
  - GAIT DISTURBANCE [None]
  - BALANCE DISORDER [None]
